FAERS Safety Report 5241246-2 (Version None)
Quarter: 2007Q1

REPORT INFORMATION
  Report Type: 
  Country: None (occurrence: None)
  Receive Date: 20070212
  Receipt Date: 20070212
  Transmission Date: 20070707
  Serious: Yes (Hospitalization)
  Sender: FDA-Public Use
  Company Number: None

PATIENT
  Sex: Male

DRUGS (1)
  1. L-ASPARIGINASE [Suspect]
     Dosage: 6000U/M2

REACTIONS (3)
  - BLOOD FIBRINOGEN DECREASED [None]
  - CEREBRAL HAEMATOMA [None]
  - NERVOUS SYSTEM DISORDER [None]
